FAERS Safety Report 10210778 (Version 1)
Quarter: 2014Q2

REPORT INFORMATION
  Report Type: Spontaneous
  Country: DE (occurrence: DE)
  Receive Date: 20140602
  Receipt Date: 20140602
  Transmission Date: 20141212
  Serious: Yes (Hospitalization)
  Sender: FDA-Public Use
  Company Number: DE-JNJFOC-20140517361

PATIENT
  Age: 58 Year
  Sex: Female
  Weight: 100 kg

DRUGS (5)
  1. XARELTO [Suspect]
     Indication: THROMBOSIS PROPHYLAXIS
     Route: 048
     Dates: start: 20140303, end: 20140325
  2. TREVILOR [Concomitant]
     Route: 048
  3. CANDESARTAN [Concomitant]
     Route: 048
  4. SORMODREN [Concomitant]
     Route: 048
  5. METOPROLOL [Concomitant]
     Route: 048

REACTIONS (4)
  - Upper gastrointestinal haemorrhage [Recovering/Resolving]
  - Haematemesis [Recovering/Resolving]
  - Blood product transfusion dependent [Recovering/Resolving]
  - Haemorrhagic anaemia [Recovering/Resolving]
